FAERS Safety Report 8291120 (Version 3)
Quarter: 2013Q2

REPORT INFORMATION
  Report Type: Spontaneous
  Country: US (occurrence: None)
  Receive Date: 20111122
  Receipt Date: 20120426
  Transmission Date: 20140414
  Serious: No
  Sender: FDA-Public Use
  Company Number: PHHY2011US47061

PATIENT
  Sex: Female

DRUGS (15)
  1. GILENYA [Suspect]
     Dosage: 0.5 MG, QD, ORAL
     Route: 048
  2. SINGULAIR [Concomitant]
  3. DICYCLOMINE HYDROCHLORIDE [Concomitant]
  4. IBUPROFEN (IBUPROFEN) [Concomitant]
  5. CALCIUM WITH VITAMIN D (CALCIUM PHOSPHATE, CALCIUM SODIUM LACTATE, ERGOCALCIFEROL) [Concomitant]
  6. OMEPRAZOLE [Concomitant]
  7. ALBUTEROL (SALBUTAMOL) [Concomitant]
  8. OXYGEN (OXYGEN) [Concomitant]
  9. CLARITIN (LORATIDINE) [Concomitant]
  10. AMBIEN (ZOLPIDEM TARTRATE) [Concomitant]
  11. VITAMIN B12 (CYANOCOBALMIN) [Concomitant]
  12. PROMETRIUM (PROGESTERONE) [Concomitant]
  13. CALCIUM (CALCIUM) [Concomitant]
  14. VITAMIN D3 (COLECALCIFEROL) [Concomitant]
  15. BACLOFEN (BACLOFEN) [Concomitant]

REACTIONS (7)
  - ARTHRALGIA [None]
  - LIMB INJURY [None]
  - PAIN IN EXTREMITY [None]
  - Facial pain [None]
  - Chest pain [None]
  - Heart rate irregular [None]
  - Headache [None]
